FAERS Safety Report 10130798 (Version 1)
Quarter: 2014Q2

REPORT INFORMATION
  Report Type: Spontaneous
  Country: US (occurrence: US)
  Receive Date: 20140428
  Receipt Date: 20140428
  Transmission Date: 20141212
  Serious: No
  Sender: FDA-Public Use
  Company Number: US-BAYER-2014-061972

PATIENT
  Age: 65 Year
  Sex: Male
  Weight: 95.24 kg

DRUGS (5)
  1. ALEVE TABLET [Suspect]
     Indication: ANALGESIC THERAPY
     Dosage: 1 DF, BID
     Route: 048
     Dates: start: 201302, end: 20140424
  2. ALEVE TABLET [Suspect]
     Indication: ARTHRALGIA
  3. ASPIRIN [Concomitant]
  4. MYOFLEX [TROLAMINE SALICYLATE] [Concomitant]
  5. METFORMIN [Concomitant]

REACTIONS (3)
  - Blood pressure increased [Not Recovered/Not Resolved]
  - Drug ineffective [None]
  - Incorrect drug administration duration [None]
